FAERS Safety Report 7717536-8 (Version None)
Quarter: 2011Q3

REPORT INFORMATION
  Report Type: 
  Country: None (occurrence: None)
  Receive Date: 20110830
  Receipt Date: 20110817
  Transmission Date: 20111222
  Serious: Yes (Other)
  Sender: FDA-Public Use
  Company Number: BE-ELI_LILLY_AND_COMPANY-BE201108006441

PATIENT
  Sex: Female

DRUGS (4)
  1. MAGNESIUM [Concomitant]
  2. FORTEO [Suspect]
     Dosage: UNK
     Dates: start: 20101127
  3. PANTOPRAZOLE [Concomitant]
  4. BETAHISTINE DIHYDROCHLORIDE [Concomitant]

REACTIONS (2)
  - ARRHYTHMIA [None]
  - FLUSHING [None]
